FAERS Safety Report 9717507 (Version 1)
Quarter: 2013Q4

REPORT INFORMATION
  Report Type: Spontaneous
  Country: US (occurrence: US)
  Receive Date: 20131127
  Receipt Date: 20131127
  Transmission Date: 20140711
  Serious: No
  Sender: FDA-Public Use
  Company Number: US-GILEAD-2009-0020429

PATIENT
  Age: 49 Year
  Sex: Female
  Weight: 44.91 kg

DRUGS (6)
  1. LETAIRIS [Suspect]
     Indication: PULMONARY ARTERIAL HYPERTENSION
     Route: 048
     Dates: start: 20080710
  2. DARVOCET N [Concomitant]
  3. PROCARDIA XL [Concomitant]
  4. NEXIUM [Concomitant]
  5. CALCIUM +D [Concomitant]
  6. TRAMADOL/APAP [Concomitant]

REACTIONS (2)
  - Eyelid oedema [Not Recovered/Not Resolved]
  - Oropharyngeal pain [Not Recovered/Not Resolved]
